FAERS Safety Report 9498211 (Version 2)
Quarter: 2014Q3

REPORT INFORMATION
  Report Type: Spontaneous
  Country: US (occurrence: US)
  Receive Date: 20130904
  Receipt Date: 20140811
  Transmission Date: 20150326
  Serious: Yes (Hospitalization, Other)
  Sender: FDA-Public Use
  Company Number: US-BAYER-2013-105740

PATIENT
  Age: 21 Year
  Sex: Female
  Weight: 52.15 kg

DRUGS (4)
  1. MIRENA [Suspect]
     Active Substance: LEVONORGESTREL
     Indication: CONTRACEPTION
     Dosage: 20 MCG/24HR, CONT
     Route: 015
     Dates: start: 20080129, end: 20080418
  2. VALTREX [Concomitant]
     Active Substance: VALACYCLOVIR HYDROCHLORIDE
     Dosage: UNK
     Dates: start: 20060418
  3. VALTREX [Concomitant]
     Active Substance: VALACYCLOVIR HYDROCHLORIDE
     Dosage: UNK
     Dates: start: 2006
  4. ESTRACE [Concomitant]
     Active Substance: ESTRADIOL
     Indication: GENITAL HAEMORRHAGE
     Dosage: UNK
     Dates: start: 2008

REACTIONS (8)
  - Genital haemorrhage [None]
  - Infection [None]
  - Device dislocation [None]
  - Uterine perforation [None]
  - Abdominal pain lower [None]
  - Injury [None]
  - Medical device pain [None]
  - Peritoneal adhesions [None]

NARRATIVE: CASE EVENT DATE: 2008
